FAERS Safety Report 9760379 (Version 2)
Quarter: 2014Q1

REPORT INFORMATION
  Report Type: Spontaneous
  Country: US (occurrence: None)
  Receive Date: 20131212
  Receipt Date: 20140129
  Transmission Date: 20141002
  Serious: Yes (Hospitalization, Other)
  Sender: FDA-Public Use
  Company Number: 2013-US-004069

PATIENT
  Age: 33 Year
  Sex: Female
  Weight: 57.6 kg

DRUGS (4)
  1. XYREM [Suspect]
     Indication: NARCOLEPSY
     Route: 048
     Dates: end: 201310
  2. MORPHINE [Suspect]
     Indication: PAIN
     Dates: start: 201310
  3. DILAUDID [Suspect]
     Indication: PAIN
     Dates: start: 201310
  4. CELLCEPT (MYCOPHENOLATE) [Concomitant]

REACTIONS (17)
  - Nephrolithiasis [None]
  - Renal stone removal [None]
  - Ureteric perforation [None]
  - Ureteral stent insertion [None]
  - Feeling abnormal [None]
  - Renal failure [None]
  - Pneumothorax [None]
  - Pulmonary embolism [None]
  - Weight decreased [None]
  - Procedural complication [None]
  - Iatrogenic injury [None]
  - Device dislocation [None]
  - Somnolence [None]
  - Insomnia [None]
  - Infection [None]
  - Therapy cessation [None]
  - Haemorrhage [None]
